FAERS Safety Report 7132094-7 (Version None)
Quarter: 2010Q4

REPORT INFORMATION
  Report Type: 
  Country: None (occurrence: None)
  Receive Date: 20101130
  Receipt Date: 20101130
  Transmission Date: 20110411
  Serious: Yes (Life-Threatening, Hospitalization)
  Sender: FDA-Public Use
  Company Number: None

PATIENT
  Age: 58 Year
  Sex: Male
  Weight: 77.1115 kg

DRUGS (1)
  1. BUMEX [Suspect]
     Indication: CARDIAC FAILURE
     Dosage: 2MG ONCE DAILY PO
     Route: 048
     Dates: start: 20100304, end: 20100401

REACTIONS (2)
  - NEUROPATHY PERIPHERAL [None]
  - SUICIDE ATTEMPT [None]
